FAERS Safety Report 6519124-8 (Version None)
Quarter: 2009Q4

REPORT INFORMATION
  Report Type: 
  Country: None (occurrence: None)
  Receive Date: 20091224
  Receipt Date: 20091224
  Transmission Date: 20100525
  Serious: Yes (Life-Threatening, Hospitalization)
  Sender: FDA-Public Use
  Company Number: None

PATIENT
  Age: 26 Year
  Sex: Male
  Weight: 83.9154 kg

DRUGS (2)
  1. CHANTIX [Suspect]
     Indication: SMOKING CESSATION THERAPY
     Dosage: .05 MG DAILY PO
     Route: 048
     Dates: start: 20091104, end: 20091105
  2. FLUOXETINE [Suspect]
     Indication: DEPRESSION
     Dosage: .20 MG DAILY PO
     Route: 048
     Dates: start: 20090801, end: 20091223

REACTIONS (19)
  - ABNORMAL BEHAVIOUR [None]
  - AGGRESSION [None]
  - ALCOHOL USE [None]
  - CRYING [None]
  - DECREASED APPETITE [None]
  - DYSPNOEA [None]
  - EUPHORIC MOOD [None]
  - FATIGUE [None]
  - FEELING ABNORMAL [None]
  - HALLUCINATION, VISUAL [None]
  - HEART RATE INCREASED [None]
  - HYPERVENTILATION [None]
  - ILLUSION [None]
  - IMPAIRED WORK ABILITY [None]
  - MANIA [None]
  - MENTAL DISORDER [None]
  - OVERCONFIDENCE [None]
  - SUICIDAL IDEATION [None]
  - THINKING ABNORMAL [None]
